FAERS Safety Report 4614907-3 (Version None)
Quarter: 2005Q1

REPORT INFORMATION
  Report Type: 
  Country: None (occurrence: None)
  Receive Date: 20050322
  Receipt Date: 20050316
  Transmission Date: 20050727
  Serious: Yes (Hospitalization)
  Sender: FDA-Public Use
  Company Number: PHBS2005TW03936

PATIENT
  Age: 70 Year
  Sex: Female

DRUGS (1)
  1. BACLOFEN [Suspect]
     Indication: PAIN IN EXTREMITY
     Dosage: 5 MG, TID
     Route: 048

REACTIONS (6)
  - CONFUSIONAL STATE [None]
  - DISORIENTATION [None]
  - DRUG TOXICITY [None]
  - HAEMOGLOBIN DECREASED [None]
  - LEUKOARAIOSIS [None]
  - SOMNOLENCE [None]
